FAERS Safety Report 6714485-9 (Version None)
Quarter: 2010Q2

REPORT INFORMATION
  Report Type: 
  Country: None (occurrence: None)
  Receive Date: 20100506
  Receipt Date: 20100426
  Transmission Date: 20101027
  Serious: Yes (Hospitalization, Other)
  Sender: FDA-Public Use
  Company Number: CA-WATSON-2010-05764

PATIENT
  Age: 2 Year
  Sex: Male

DRUGS (1)
  1. CLONIDINE [Suspect]
     Indication: ACCIDENTAL EXPOSURE
     Dosage: UNK
     Route: 048

REACTIONS (6)
  - ACCIDENTAL EXPOSURE [None]
  - DEPRESSION [None]
  - HYPOTENSION [None]
  - HYPOTONIA [None]
  - LETHARGY [None]
  - MIOSIS [None]
